FAERS Safety Report 4745770-8 (Version None)
Quarter: 2005Q3

REPORT INFORMATION
  Report Type: 
  Country: None (occurrence: None)
  Receive Date: 20050816
  Receipt Date: 20050805
  Transmission Date: 20060218
  Serious: Yes (Other)
  Sender: FDA-Public Use
  Company Number: RU-ABBOTT-05P-251-0307803-00

PATIENT
  Sex: Female

DRUGS (3)
  1. DEPAKENE [Suspect]
     Indication: BIPOLAR DISORDER
     Dates: start: 20050715, end: 20050723
  2. DEPAKENE [Suspect]
     Dates: start: 20050724
  3. ZOLPIDEM [Suspect]
     Indication: INSOMNIA
     Dates: start: 20050721, end: 20050721

REACTIONS (4)
  - CONTUSION [None]
  - DYSSOMNIA [None]
  - HYPERSOMNIA [None]
  - MANIA [None]
